FAERS Safety Report 6088887-0 (Version None)
Quarter: 2009Q1

REPORT INFORMATION
  Report Type: 
  Country: None (occurrence: None)
  Receive Date: 20090224
  Receipt Date: 20090213
  Transmission Date: 20090719
  Serious: Yes (Other)
  Sender: FDA-Public Use
  Company Number: US-AMGEN-QUU333921

PATIENT
  Sex: Male

DRUGS (3)
  1. ENBREL [Suspect]
     Indication: RHEUMATOID ARTHRITIS
     Route: 058
     Dates: start: 20080507
  2. ENBREL [Suspect]
     Indication: SJOGREN'S SYNDROME
  3. ARAVA [Concomitant]

REACTIONS (7)
  - ABDOMINAL PAIN [None]
  - FATIGUE [None]
  - GALLBLADDER OPERATION [None]
  - INJECTION SITE RASH [None]
  - INSOMNIA [None]
  - RASH [None]
  - SOMNOLENCE [None]
